FAERS Safety Report 6133480-4 (Version None)
Quarter: 2009Q1

REPORT INFORMATION
  Report Type: 
  Country: None (occurrence: None)
  Receive Date: 20090324
  Receipt Date: 20090324
  Transmission Date: 20090719
  Serious: Yes (Life-Threatening, Other)
  Sender: FDA-Public Use
  Company Number: None

PATIENT
  Age: 41 Year
  Sex: Female
  Weight: 68.0396 kg

DRUGS (3)
  1. PRISTIQ [Suspect]
     Indication: DEPRESSION
     Dosage: 50MG. ONE A DAY PO
     Route: 048
     Dates: start: 20090308, end: 20090323
  2. HALDOL [Concomitant]
  3. COGENTIN [Concomitant]

REACTIONS (2)
  - DIZZINESS [None]
  - SWELLING [None]
